FAERS Safety Report 19309696 (Version 1)
Quarter: 2021Q2

REPORT INFORMATION
  Report Type: Other
  Country: CN (occurrence: CN)
  Receive Date: 20210525
  Receipt Date: 20210525
  Transmission Date: 20210717
  Serious: Yes (Other)
  Sender: FDA-Public Use
  Company Number: CN-ROCHE-2837310

PATIENT
  Sex: Female

DRUGS (4)
  1. CIMETIDINE AND SODIUM CHLORIDE [Concomitant]
     Dosage: INJECTION; 100ML/VIAL?GIVEN DRUG BY CONTINUOUS INTRAVENOUS DRIP 20 MINUTES BEFORE MEDICATION
     Route: 041
  2. BEVACIZUMAB. [Suspect]
     Active Substance: BEVACIZUMAB
     Indication: OVARIAN CANCER RECURRENT
     Dosage: 5 MG/KG ONCE EVERY 2 WEEKS OR 7.5MG/KG, ONCE EVERY 3 WEEKS, 3 WEEKS WAS A CYCLE, AND THE MEDICINE WA
     Route: 041
  3. PACLITAXEL. [Suspect]
     Active Substance: PACLITAXEL
     Indication: OVARIAN CANCER RECURRENT
     Dosage: (30MG:5 ML) GIVEN INTRAVENOUSLY FOR 3 HOURS, CONTINUOUS MEDICATION FOR 6 CYCLES.
     Route: 042
  4. PROMETHAZINE HYDROCHLORIDE. [Concomitant]
     Active Substance: PROMETHAZINE HYDROCHLORIDE
     Dosage: INJECTION; 2ML:50MG?THE PATIENTS WAS GIVEN 20?50 MG DRUG BY INTRAVENOUS INFUSION 30 MINUTES BEFORE T
     Route: 042

REACTIONS (1)
  - Myelosuppression [Unknown]
